FAERS Safety Report 11618203 (Version 1)
Quarter: 2015Q4

REPORT INFORMATION
  Report Type: Spontaneous
  Country: CH (occurrence: CH)
  Receive Date: 20151011
  Receipt Date: 20151011
  Transmission Date: 20160304
  Serious: Yes (Hospitalization, Other)
  Sender: FDA-Public Use
  Company Number: CH-TEVA-598053ISR

PATIENT
  Age: 32 Year
  Sex: Male

DRUGS (10)
  1. PROMAZINE [Concomitant]
     Active Substance: PROMAZINE
     Dosage: 25 MILLIGRAM DAILY;
     Route: 065
  2. RISPERIDONE. [Suspect]
     Active Substance: RISPERIDONE
     Dosage: 2 MILLIGRAM DAILY;
     Route: 065
  3. HALOPERIDOL. [Concomitant]
     Active Substance: HALOPERIDOL
     Dosage: 5 MILLIGRAM DAILY;
     Route: 065
  4. FLUPENTIXOL [Concomitant]
     Active Substance: FLUPENTIXOL
     Dosage: 1 MILLIGRAM DAILY;
  5. VALPROIC ACID. [Concomitant]
     Active Substance: VALPROIC ACID
     Dosage: 150 MILLIGRAM DAILY;
     Route: 065
  6. AMISULPRID [Suspect]
     Active Substance: AMISULPRIDE
     Dosage: 800 MILLIGRAM DAILY;
     Route: 065
  7. ZUCLOPENTHIXOL [Concomitant]
     Active Substance: ZUCLOPENTHIXOL
     Dosage: 50 MILLIGRAM DAILY;
     Route: 065
  8. QUETIAPINE [Suspect]
     Active Substance: QUETIAPINE
     Dosage: 1000 MILLIGRAM DAILY;
     Route: 065
  9. DULOXETINE. [Concomitant]
     Active Substance: DULOXETINE
     Dosage: 60 MILLIGRAM DAILY;
     Route: 065
  10. LORAZEPAM. [Concomitant]
     Active Substance: LORAZEPAM
     Dosage: 5 MILLIGRAM DAILY;
     Route: 065

REACTIONS (24)
  - Tension [Unknown]
  - Aggression [Unknown]
  - Social problem [Unknown]
  - Vision blurred [Unknown]
  - Headache [Recovered/Resolved]
  - Electroencephalogram abnormal [Unknown]
  - Condition aggravated [Unknown]
  - Hallucination, auditory [Unknown]
  - Erectile dysfunction [Unknown]
  - Memory impairment [Unknown]
  - Intracranial pressure increased [Unknown]
  - Executive dysfunction [Unknown]
  - Persecutory delusion [Unknown]
  - Treatment noncompliance [Unknown]
  - Urge incontinence [Unknown]
  - Hyperprolactinaemia [Unknown]
  - Restlessness [Unknown]
  - Mental disorder [Unknown]
  - Dizziness [Recovered/Resolved]
  - Anxiety disorder [Unknown]
  - Hydrocephalus [Unknown]
  - Depression [Unknown]
  - Incontinence [Unknown]
  - Gait disturbance [Recovered/Resolved]

NARRATIVE: CASE EVENT DATE: 2006
